FAERS Safety Report 8237224-1 (Version None)
Quarter: 2012Q1

REPORT INFORMATION
  Report Type: 
  Country: None (occurrence: None)
  Receive Date: 20120327
  Receipt Date: 20120316
  Transmission Date: 20120608
  Serious: Yes (Hospitalization)
  Sender: FDA-Public Use
  Company Number: US-BAXTER-2012BAX000228

PATIENT
  Sex: Female

DRUGS (8)
  1. DIANEAL PD-2 W/ DEXTROSE 1.5% [Suspect]
     Route: 033
  2. DIANEAL LOW CALCIUM (ULTRABAG) [Suspect]
     Indication: PERITONEAL DIALYSIS
     Route: 033
  3. DIANEAL LOW CALCIUM (ULTRABAG) [Suspect]
     Route: 033
  4. DIANEAL [Suspect]
     Route: 033
  5. DIANEAL PD-2 W/ DEXTROSE 1.5% [Suspect]
     Indication: PERITONEAL DIALYSIS
     Route: 033
  6. DIANEAL [Suspect]
     Indication: PERITONEAL DIALYSIS
     Route: 033
  7. DIANEAL LOW CALCIUM (ULTRABAG) [Suspect]
     Route: 033
  8. DIANEAL [Suspect]
     Route: 033

REACTIONS (1)
  - ALTERED STATE OF CONSCIOUSNESS [None]
